FAERS Safety Report 5691579-0 (Version None)
Quarter: 2008Q2

REPORT INFORMATION
  Report Type: 
  Country: None (occurrence: None)
  Receive Date: 20080402
  Receipt Date: 20080324
  Transmission Date: 20081010
  Serious: Yes (Life-Threatening, Hospitalization)
  Sender: FDA-Public Use
  Company Number: JP-JNJFOC-20080304318

PATIENT
  Sex: Female
  Weight: 46 kg

DRUGS (14)
  1. REMICADE [Suspect]
     Route: 042
  2. REMICADE [Suspect]
     Route: 042
  3. REMICADE [Suspect]
     Route: 042
  4. REMICADE [Suspect]
     Route: 042
  5. REMICADE [Suspect]
     Route: 042
  6. REMICADE [Suspect]
     Indication: RHEUMATOID ARTHRITIS
     Route: 042
  7. RHEUMATREX [Concomitant]
  8. RHEUMATREX [Concomitant]
     Indication: RHEUMATOID ARTHRITIS
  9. ADRENAL HORMONE PREPARATION [Concomitant]
     Indication: RHEUMATOID ARTHRITIS
  10. PREDNISOLONE [Concomitant]
     Indication: RHEUMATOID ARTHRITIS
  11. RIMATIL [Concomitant]
     Indication: RHEUMATOID ARTHRITIS
  12. LOXONIN [Concomitant]
     Indication: RHEUMATOID ARTHRITIS
  13. FOLIAMIN [Concomitant]
  14. ALENDRONATE SODIUM [Concomitant]

REACTIONS (3)
  - BONE MARROW FAILURE [None]
  - CHOLECYSTITIS [None]
  - INTERSTITIAL LUNG DISEASE [None]
